FAERS Safety Report 9192091 (Version 1)
Quarter: 2013Q1

REPORT INFORMATION
  Report Type: Spontaneous
  Country: US (occurrence: None)
  Receive Date: 20130326
  Receipt Date: 20130326
  Transmission Date: 20140127
  Serious: No
  Sender: FDA-Public Use
  Company Number: None

PATIENT
  Age: 36 Year
  Sex: Male
  Weight: 90.72 kg

DRUGS (1)
  1. ADDERALL XR [Suspect]

REACTIONS (3)
  - Fatigue [None]
  - Feeling abnormal [None]
  - Product substitution issue [None]
